FAERS Safety Report 24838783 (Version 2)
Quarter: 2025Q2

REPORT INFORMATION
  Report Type: Spontaneous
  Country: US (occurrence: US)
  Receive Date: 20250113
  Receipt Date: 20250408
  Transmission Date: 20250717
  Serious: No
  Sender: AMGEN
  Company Number: US-AMGEN-USASP2025005426

PATIENT

DRUGS (12)
  1. XGEVA [Suspect]
     Active Substance: DENOSUMAB
     Indication: Hypercalcaemia
     Route: 065
  2. XGEVA [Suspect]
     Active Substance: DENOSUMAB
     Dosage: 60 MILLIGRAM, Q6MO
     Route: 065
  3. PREDNISONE [Suspect]
     Active Substance: PREDNISONE
     Indication: Hypercalcaemia
     Dosage: 40 MILLIGRAM, QD
     Route: 065
  4. EPOETIN ALFA [Suspect]
     Active Substance: ERYTHROPOIETIN
     Indication: Anaemia
     Route: 065
  5. ZOLEDRONIC ACID [Concomitant]
     Active Substance: ZOLEDRONIC ACID
  6. AMLODIPINE [Concomitant]
     Active Substance: AMLODIPINE BESYLATE
  7. ALBUTEROL [Concomitant]
     Active Substance: ALBUTEROL
  8. MONTELUKAST [Concomitant]
     Active Substance: MONTELUKAST
  9. FLUTICASONE FUROATE\VILANTEROL TRIFENATATE [Concomitant]
     Active Substance: FLUTICASONE FUROATE\VILANTEROL TRIFENATATE
  10. ALENDRONATE [Concomitant]
     Active Substance: ALENDRONATE SODIUM
  11. CALCITONIN [Concomitant]
     Active Substance: CALCITONIN
     Dosage: 200 UNITS, QD
     Route: 045
  12. PAMIDRONATE [Concomitant]
     Active Substance: PAMIDRONATE DISODIUM
     Dosage: 30 MILLIGRAM, QD

REACTIONS (2)
  - Drug effective for unapproved indication [Unknown]
  - Off label use [Unknown]
